FAERS Safety Report 9654836 (Version 2)
Quarter: 2013Q4

REPORT INFORMATION
  Report Type: Spontaneous
  Country: US (occurrence: US)
  Receive Date: 20131029
  Receipt Date: 20131029
  Transmission Date: 20140711
  Serious: No
  Sender: FDA-Public Use
  Company Number: US-PURDUE-USA-2008-0036295

PATIENT
  Age: 36 Year
  Sex: Male

DRUGS (7)
  1. OXYCONTIN TABLETS [Suspect]
     Indication: PAIN
     Dosage: 40 MG, BID
     Dates: end: 20081205
  2. OXYCODONE HYDROCHLORIDE (SIMILAR TO NDA 20-553) [Suspect]
     Indication: PAIN
     Dosage: 60 MG, BID
  3. PERCOCET                           /00867901/ [Concomitant]
     Indication: BREAKTHROUGH PAIN
     Dates: start: 20081115, end: 20081129
  4. NEXIUM                             /01479303/ [Concomitant]
     Dates: start: 2008
  5. LEVOTHYROXINE [Concomitant]
     Indication: HYPOTHYROIDISM
  6. LISINOPRIL [Concomitant]
     Indication: HYPERTENSION
  7. CORTICOSTEROID NOS [Concomitant]
     Dosage: UNK, SINGLE
     Dates: start: 20081020, end: 20081020

REACTIONS (12)
  - Pain [Recovered/Resolved]
  - Muscle spasms [Recovered/Resolved]
  - Irritability [Recovered/Resolved]
  - Heart rate increased [Recovered/Resolved]
  - Palpitations [Recovered/Resolved]
  - Abdominal pain [Recovered/Resolved]
  - Agitation [Recovered/Resolved]
  - Insomnia [Recovered/Resolved]
  - Hyperhidrosis [Recovered/Resolved]
  - Drug ineffective [Recovered/Resolved]
  - Cough [Unknown]
  - Constipation [Unknown]
